FAERS Safety Report 8258172-7 (Version None)
Quarter: 2012Q2

REPORT INFORMATION
  Report Type: 
  Country: None (occurrence: None)
  Receive Date: 20120404
  Receipt Date: 20120328
  Transmission Date: 20120825
  Serious: Yes (Hospitalization)
  Sender: FDA-Public Use
  Company Number: GXKR2012DE001329

PATIENT

DRUGS (9)
  1. PREDNISOLONE [Concomitant]
     Indication: MUSCULOSKELETAL PAIN
     Dosage: 1/2-0-0
     Route: 048
  2. MIRTAZAPINE [Concomitant]
     Indication: DEPRESSION
     Dosage: 0-0-0-1
     Route: 048
  3. GLIMEPIRIDE [Concomitant]
  4. AMLODIPINE [Concomitant]
     Dosage: 1-0-1
  5. ALISKIREN [Suspect]
     Indication: HYPERTENSION
     Dosage: 1-0-0
     Route: 048
     Dates: start: 20111220, end: 20120113
  6. RAMIPRIL [Suspect]
     Indication: HYPERTENSION
     Dosage: 1-0-1
     Route: 048
     Dates: end: 20120113
  7. TORSEMIDE [Concomitant]
     Indication: RENAL FAILURE
     Dosage: 1-1-0
     Route: 048
  8. LANTUS [Concomitant]
  9. METOPROLOL SUCCINATE [Concomitant]
     Dosage: 1-0-1

REACTIONS (2)
  - HYPERKALAEMIA [None]
  - RENAL IMPAIRMENT [None]
